FAERS Safety Report 14244433 (Version 1)
Quarter: 2017Q4

REPORT INFORMATION
  Report Type: Spontaneous
  Country: US (occurrence: US)
  Receive Date: 20171201
  Receipt Date: 20171201
  Transmission Date: 20180321
  Serious: Yes (Hospitalization)
  Sender: FDA-Public Use
  Company Number: US-BAYER-2017-232980

PATIENT
  Sex: Male

DRUGS (1)
  1. ULTRAVIST [Suspect]
     Active Substance: IOPROMIDE
     Indication: COMPUTERISED TOMOGRAM
     Dosage: 65 ML, ONCE
     Dates: start: 20171116, end: 20171116

REACTIONS (4)
  - Oedema [None]
  - Urticaria [None]
  - Rhinorrhoea [None]
  - Pruritus [None]

NARRATIVE: CASE EVENT DATE: 20171116
